FAERS Safety Report 9649137 (Version 1)
Quarter: 2013Q4

REPORT INFORMATION
  Report Type: Spontaneous
  Country: GB (occurrence: GB)
  Receive Date: 20131028
  Receipt Date: 20131028
  Transmission Date: 20140711
  Serious: Yes (Life-Threatening, Hospitalization, Other)
  Sender: FDA-Public Use
  Company Number: GB-WATSON-2013-19608

PATIENT
  Age: 51 Year
  Sex: Male
  Weight: 128 kg

DRUGS (1)
  1. ATRACURIUM (UNKNOWN) [Suspect]
     Indication: PARALYSIS
     Dosage: 50 MG, SINGLE; ONE DOSE ONLY
     Route: 042
     Dates: start: 20130927, end: 20130927

REACTIONS (6)
  - Cardiac arrest [Recovered/Resolved]
  - Supraventricular tachycardia [Recovering/Resolving]
  - Hypotension [Recovering/Resolving]
  - Bronchospasm [Recovering/Resolving]
  - Hypoventilation [Recovering/Resolving]
  - Rash erythematous [Recovering/Resolving]
